FAERS Safety Report 10438886 (Version 2)
Quarter: 2014Q4

REPORT INFORMATION
  Report Type: Spontaneous
  Country: US (occurrence: US)
  Receive Date: 20140908
  Receipt Date: 20141002
  Transmission Date: 20150528
  Serious: Yes (Hospitalization)
  Sender: FDA-Public Use
  Company Number: US-TAKEDA-2014TUS008329

PATIENT
  Sex: Female
  Weight: 113.38 kg

DRUGS (6)
  1. LITHIUM [Concomitant]
     Active Substance: LITHIUM CARBONATE
     Dosage: UNK
  2. BRINTELLIX [Suspect]
     Active Substance: VORTIOXETINE HYDROBROMIDE
     Indication: DEPRESSION
     Dosage: 10 MG, QD
     Route: 048
     Dates: start: 20140825
  3. PRAZIM [Concomitant]
     Dosage: UNK
  4. VISTARIL [Concomitant]
     Active Substance: HYDROXYZINE PAMOATE
     Dosage: UNK
  5. EFFEXOR [Concomitant]
     Active Substance: VENLAFAXINE HYDROCHLORIDE
     Dosage: UNK
     Dates: end: 20140825
  6. KLONOPIN [Concomitant]
     Active Substance: CLONAZEPAM
     Dosage: UNK

REACTIONS (6)
  - Feeding disorder [Recovering/Resolving]
  - Mental disorder [Unknown]
  - Pain [Recovering/Resolving]
  - Vomiting [Unknown]
  - Abdominal pain upper [Recovering/Resolving]
  - Nausea [Unknown]
